FAERS Safety Report 6172541-0 (Version None)
Quarter: 2009Q2

REPORT INFORMATION
  Report Type: 
  Country: None (occurrence: None)
  Receive Date: 20090427
  Receipt Date: 20090413
  Transmission Date: 20091009
  Serious: Yes (Hospitalization, Other)
  Sender: FDA-Public Use
  Company Number: ADE2009-0575

PATIENT
  Age: 69 Year
  Sex: Male

DRUGS (3)
  1. METFORMIN HCL [Suspect]
     Indication: TYPE 2 DIABETES MELLITUS
     Dosage: 850MG, BID
  2. GLIMEPIRIDE [Concomitant]
  3. PIOGLITAZONE [Concomitant]

REACTIONS (3)
  - BLOOD LACTIC ACID INCREASED [None]
  - DEHYDRATION [None]
  - GASTROENTERITIS [None]
